FAERS Safety Report 5908776-9 (Version None)
Quarter: 2008Q4

REPORT INFORMATION
  Report Type: 
  Country: None (occurrence: None)
  Receive Date: 20081006
  Receipt Date: 20080925
  Transmission Date: 20090506
  Serious: Yes (Hospitalization)
  Sender: FDA-Public Use
  Company Number: PHHY2008FR20198

PATIENT
  Sex: Female

DRUGS (2)
  1. LESCOL [Suspect]
     Indication: HYPERCHOLESTEROLAEMIA
     Dosage: 80 MG/DAY
     Route: 048
     Dates: start: 20050101, end: 20080501
  2. LESCOL [Suspect]
     Dosage: 80 MG TABLET ONCE
     Route: 048
     Dates: start: 20080707

REACTIONS (8)
  - ABDOMINAL PAIN [None]
  - ABDOMINAL PAIN UPPER [None]
  - CYTOLYTIC HEPATITIS [None]
  - HEPATIC PAIN [None]
  - JAUNDICE [None]
  - MALAISE [None]
  - PYREXIA [None]
  - VOMITING [None]
